FAERS Safety Report 10056959 (Version 1)
Quarter: 2014Q2

REPORT INFORMATION
  Report Type: Spontaneous
  Country: US (occurrence: US)
  Receive Date: 20140403
  Receipt Date: 20140403
  Transmission Date: 20141212
  Serious: Yes (Life-Threatening)
  Sender: FDA-Public Use
  Company Number: US-BANPHARM-20142485

PATIENT
  Age: 30 Year
  Sex: Male

DRUGS (4)
  1. IBUPROFEN UNKNOWN PRODUCT [Suspect]
     Dosage: 96 G,
     Route: 048
  2. EFAVIRENZ [Concomitant]
  3. EMTRICITABINE [Concomitant]
  4. TENOFOVIR [Concomitant]

REACTIONS (2)
  - Circulatory collapse [Recovered/Resolved]
  - Shock [Recovered/Resolved]
